FAERS Safety Report 24326712 (Version 1)
Quarter: 2024Q3

REPORT INFORMATION
  Report Type: Report from Study
  Country: US (occurrence: None)
  Receive Date: 20240917
  Receipt Date: 20240917
  Transmission Date: 20241017
  Serious: Yes (Hospitalization, Other)
  Sender: ASTRAZENECA
  Company Number: 2024A207348

PATIENT
  Sex: Female

DRUGS (1)
  1. BRILINTA [Suspect]
     Active Substance: TICAGRELOR
     Route: 048

REACTIONS (13)
  - Myocardial infarction [Unknown]
  - Thrombosis [Unknown]
  - Renal disorder [Unknown]
  - Blood test abnormal [Unknown]
  - Liver disorder [Unknown]
  - Red blood cell count abnormal [Unknown]
  - Product use issue [Unknown]
  - Dyspnoea [Unknown]
  - Withdrawal syndrome [Unknown]
  - Hypersensitivity [Unknown]
  - Pneumonia [Unknown]
  - White blood cell count abnormal [Unknown]
  - Product dose omission issue [Unknown]
